FAERS Safety Report 8461994 (Version 13)
Quarter: 2015Q4

REPORT INFORMATION
  Report Type: Report from Study
  Country: CA (occurrence: CA)
  Receive Date: 20120315
  Receipt Date: 20151112
  Transmission Date: 20160305
  Serious: Yes (Hospitalization)
  Sender: FDA-Public Use
  Company Number: CA-ROCHE-1046204

PATIENT
  Age: 51 Year
  Sex: Female
  Weight: 59.02 kg

DRUGS (19)
  1. FOLIC ACID. [Concomitant]
     Active Substance: FOLIC ACID
     Route: 065
  2. FLEXERIL (CANADA) [Concomitant]
  3. METHOTREXATE [Concomitant]
     Active Substance: METHOTREXATE
     Route: 058
  4. SYNTHROID [Concomitant]
     Active Substance: LEVOTHYROXINE SODIUM
  5. BETAHISTINE [Concomitant]
     Active Substance: BETAHISTINE
     Route: 065
  6. RITUXAN [Suspect]
     Active Substance: RITUXIMAB
     Indication: RHEUMATOID ARTHRITIS
     Route: 042
     Dates: start: 20110809, end: 20120425
  7. ACTEMRA [Suspect]
     Active Substance: TOCILIZUMAB
     Indication: RHEUMATOID ARTHRITIS
     Route: 042
     Dates: start: 20141231
  8. ACTEMRA [Suspect]
     Active Substance: TOCILIZUMAB
     Route: 042
     Dates: start: 20150429
  9. ACTEMRA [Suspect]
     Active Substance: TOCILIZUMAB
     Route: 042
     Dates: start: 20150721
  10. LYRICA [Concomitant]
     Active Substance: PREGABALIN
     Dosage: 2 TAB IN THE MORNING AND 25MG AT NIGHT
     Route: 065
  11. ACTEMRA [Suspect]
     Active Substance: TOCILIZUMAB
     Route: 042
     Dates: start: 20150325
  12. BENADRYL [Concomitant]
     Active Substance: DIPHENHYDRAMINE HYDROCHLORIDE
     Dosage: 30 MINS BEFORE INFUSION
     Route: 048
     Dates: start: 20110809, end: 20120425
  13. ACTEMRA [Suspect]
     Active Substance: TOCILIZUMAB
     Route: 042
     Dates: start: 20150225
  14. ADALAT CC [Concomitant]
     Active Substance: NIFEDIPINE
     Dosage: 60 MG+20 MG
     Route: 065
  15. BENADRYL [Concomitant]
     Active Substance: DIPHENHYDRAMINE HYDROCHLORIDE
     Route: 042
  16. TYLENOL [Concomitant]
     Active Substance: ACETAMINOPHEN
     Route: 048
     Dates: start: 20110809, end: 20120425
  17. BENADRYL [Concomitant]
     Active Substance: DIPHENHYDRAMINE HYDROCHLORIDE
     Dosage: FOR INFUSION REACTION
     Route: 065
     Dates: start: 20141231
  18. PANTOLOC [Concomitant]
     Active Substance: PANTOPRAZOLE SODIUM
  19. SOLU-MEDROL [Concomitant]
     Active Substance: METHYLPREDNISOLONE SODIUM SUCCINATE
     Route: 042
     Dates: start: 20110809, end: 20120425

REACTIONS (8)
  - Infusion related reaction [Recovered/Resolved]
  - Nasopharyngitis [Unknown]
  - Heart rate decreased [Unknown]
  - Influenza like illness [Not Recovered/Not Resolved]
  - Pyrexia [Unknown]
  - Infusion related reaction [Recovered/Resolved]
  - Intracranial aneurysm [Recovering/Resolving]
  - Gingivitis [Unknown]

NARRATIVE: CASE EVENT DATE: 201201
